FAERS Safety Report 21496051 (Version 1)
Quarter: 2022Q4

REPORT INFORMATION
  Report Type: Spontaneous
  Country: FR (occurrence: FR)
  Receive Date: 20221022
  Receipt Date: 20221022
  Transmission Date: 20230113
  Serious: Yes (Other)
  Sender: FDA-Public Use
  Company Number: FR-drreddys-LIT/FRA/22/0156065

PATIENT
  Age: 72 Year
  Sex: Male

DRUGS (14)
  1. BORTEZOMIB [Suspect]
     Active Substance: BORTEZOMIB
     Indication: Monoclonal gammopathy
  2. BORTEZOMIB [Suspect]
     Active Substance: BORTEZOMIB
     Indication: Henoch-Schonlein purpura
  3. CYCLOPHOSPHAMIDE [Suspect]
     Active Substance: CYCLOPHOSPHAMIDE
     Indication: Monoclonal gammopathy
     Dosage: CONVENTIONAL TREATMENT
  4. CYCLOPHOSPHAMIDE [Suspect]
     Active Substance: CYCLOPHOSPHAMIDE
     Indication: Henoch-Schonlein purpura
     Dosage: PLASMA CELL TARGETING THERAPIES (PCTT)
  5. DEXAMETHASONE [Suspect]
     Active Substance: DEXAMETHASONE
     Indication: Monoclonal gammopathy
  6. DEXAMETHASONE [Suspect]
     Active Substance: DEXAMETHASONE
     Indication: Henoch-Schonlein purpura
  7. COLCHICINE [Suspect]
     Active Substance: COLCHICINE
     Indication: Monoclonal gammopathy
  8. COLCHICINE [Suspect]
     Active Substance: COLCHICINE
     Indication: Henoch-Schonlein purpura
  9. MYCOPHENOLATE MOFETIL [Suspect]
     Active Substance: MYCOPHENOLATE MOFETIL
     Indication: Monoclonal gammopathy
  10. MYCOPHENOLATE MOFETIL [Suspect]
     Active Substance: MYCOPHENOLATE MOFETIL
     Indication: Henoch-Schonlein purpura
  11. AZATHIOPRINE [Suspect]
     Active Substance: AZATHIOPRINE
     Indication: Monoclonal gammopathy
  12. AZATHIOPRINE [Suspect]
     Active Substance: AZATHIOPRINE
     Indication: Henoch-Schonlein purpura
  13. RITUXIMAB [Suspect]
     Active Substance: RITUXIMAB
     Indication: Monoclonal gammopathy
  14. RITUXIMAB [Suspect]
     Active Substance: RITUXIMAB
     Indication: Henoch-Schonlein purpura

REACTIONS (6)
  - Tumour flare [Unknown]
  - Monoclonal gammopathy [Unknown]
  - Henoch-Schonlein purpura [Unknown]
  - Drug ineffective for unapproved indication [Unknown]
  - Off label use [Unknown]
  - Therapy partial responder [Unknown]
